FAERS Safety Report 21279614 (Version 1)
Quarter: 2022Q3

REPORT INFORMATION
  Report Type: Spontaneous
  Country: US (occurrence: None)
  Receive Date: 20220831
  Receipt Date: 20220831
  Transmission Date: 20221027
  Serious: No
  Sender: FDA-Public Use
  Company Number: None

PATIENT
  Sex: Female

DRUGS (12)
  1. HUMIRA [Suspect]
     Active Substance: ADALIMUMAB
     Indication: Overlap syndrome
     Dosage: OTHER QUANTITY : 40MG/0.4ML;?OTHER FREQUENCY : EVERY FOURTEEN DAY;?
     Route: 058
     Dates: start: 20190412
  2. ABILIFY TAB [Concomitant]
  3. ARIPIPRAZOLE TAB [Concomitant]
  4. EFFEXOR XR CAP [Concomitant]
  5. GABAPENTIN [Concomitant]
     Active Substance: GABAPENTIN
  6. HYDROXYCHLOR TAB [Concomitant]
  7. MYCOPHENOLAT TAB [Concomitant]
  8. NAPROXEN TAB [Concomitant]
  9. RANITIDINE TAB [Concomitant]
  10. TRAZODONE TAB [Concomitant]
  11. VALACYCLOVIR TAB [Concomitant]
  12. VENLFAXINE CAP ER [Concomitant]

REACTIONS (2)
  - Therapy interrupted [None]
  - Memory impairment [None]
